FAERS Safety Report 14370329 (Version 2)
Quarter: 2022Q1

REPORT INFORMATION
  Report Type: Spontaneous
  Country: US (occurrence: US)
  Receive Date: 20180110
  Receipt Date: 20220302
  Transmission Date: 20220423
  Serious: Yes (Disabling)
  Sender: FDA-Public Use
  Company Number: US-TEVA-2018-US-844128

PATIENT
  Age: 73 Year
  Sex: Female
  Weight: 83.9 kg

DRUGS (4)
  1. DOCETAXEL [Suspect]
     Active Substance: DOCETAXEL
     Indication: Breast cancer female
     Dosage: NO OF CYCLES: 04, FREQUENCY: EVERY 3 WEEKS, DOSAGE : 120 MG
     Route: 065
     Dates: start: 20130806, end: 20131008
  2. CYTOXAN [Concomitant]
     Active Substance: CYCLOPHOSPHAMIDE
     Indication: Breast cancer female
     Dosage: NO OF CYCLES: 04, FREQUENCY: EVERY 3 WEEKS, DOSAGE : 1000 MG
     Route: 065
     Dates: start: 20130806, end: 20131008
  3. SYNTHROID [Concomitant]
     Active Substance: LEVOTHYROXINE SODIUM
     Indication: Thyroid disorder
     Dosage: ONGOING
     Route: 065
     Dates: start: 1994
  4. CYMBALTA [Concomitant]
     Active Substance: DULOXETINE HYDROCHLORIDE
     Indication: Breast cancer female
     Dosage: ONGOING
     Route: 065
     Dates: start: 2013

REACTIONS (4)
  - Alopecia areata [Not Recovered/Not Resolved]
  - Madarosis [Not Recovered/Not Resolved]
  - Hair colour changes [Not Recovered/Not Resolved]
  - Hair texture abnormal [Not Recovered/Not Resolved]

NARRATIVE: CASE EVENT DATE: 20131001
